FAERS Safety Report 17219184 (Version 1)
Quarter: 2020Q1

REPORT INFORMATION
  Report Type: Spontaneous
  Country: US (occurrence: US)
  Receive Date: 20191230
  Receipt Date: 20191230
  Transmission Date: 20200409
  Serious: No
  Sender: FDA-Public Use
  Company Number: None

PATIENT
  Age: 41 Year

DRUGS (2)
  1. NINLARO [Concomitant]
     Active Substance: IXAZOMIB CITRATE
  2. NINLARO [Suspect]
     Active Substance: IXAZOMIB CITRATE

REACTIONS (2)
  - Adverse drug reaction [None]
  - Loss of personal independence in daily activities [None]
